FAERS Safety Report 8482176-2 (Version None)
Quarter: 2012Q3

REPORT INFORMATION
  Report Type: 
  Country: None (occurrence: None)
  Receive Date: 20120702
  Receipt Date: 20120626
  Transmission Date: 20120928
  Serious: Yes (Life-Threatening, Hospitalization, Other)
  Sender: FDA-Public Use
  Company Number: US-ASTRAZENECA-2012SE28966

PATIENT
  Age: 56 Year
  Sex: Male
  Weight: 70.3 kg

DRUGS (8)
  1. INSULIN [Concomitant]
  2. NEXIUM [Suspect]
     Indication: DYSPEPSIA
     Route: 048
     Dates: start: 20020101
  3. HUMALOG [Concomitant]
     Dates: start: 19820101
  4. NEXIUM [Suspect]
     Route: 048
  5. LANTUS [Concomitant]
     Dates: start: 19820101
  6. BLOOD PRESSURE MEDICATIONS [Concomitant]
  7. CHOLESTEROL MEDICATIONS [Concomitant]
  8. SLEEPING MEDICATIONS [Concomitant]

REACTIONS (8)
  - NOSOCOMIAL INFECTION [None]
  - MALAISE [None]
  - BLOOD GLUCOSE DECREASED [None]
  - CHEST PAIN [None]
  - OFF LABEL USE [None]
  - CONVULSION [None]
  - DRUG DOSE OMISSION [None]
  - COMA [None]
